FAERS Safety Report 9371711 (Version 1)
Quarter: 2013Q2

REPORT INFORMATION
  Report Type: Spontaneous
  Country: US (occurrence: US)
  Receive Date: 20130627
  Receipt Date: 20130627
  Transmission Date: 20140414
  Serious: No
  Sender: FDA-Public Use
  Company Number: US-PFIZER INC-2013190495

PATIENT
  Age: 93 Year
  Sex: Female

DRUGS (1)
  1. LATANOPROST [Suspect]
     Dosage: ONE DROP IN BOTH EYES, 1X/DAY
     Route: 047

REACTIONS (4)
  - Eye colour change [Recovered/Resolved]
  - Dry eye [Recovered/Resolved]
  - Eye irritation [Recovered/Resolved]
  - Foreign body sensation in eyes [Recovered/Resolved]
